FAERS Safety Report 9832813 (Version 2)
Quarter: 2014Q1

REPORT INFORMATION
  Report Type: Report from Study
  Country: US (occurrence: US)
  Receive Date: 20140121
  Receipt Date: 20140123
  Transmission Date: 20141002
  Serious: Yes (Hospitalization)
  Sender: FDA-Public Use
  Company Number: US-GLAXOSMITHKLINE-B0961416A

PATIENT
  Age: 58 Year
  Sex: Female
  Weight: 80.4 kg

DRUGS (39)
  1. FLUTICASONE FUROATE + VILANTEROL TRIFENATATE [Suspect]
     Indication: CHRONIC OBSTRUCTIVE PULMONARY DISEASE
     Route: 055
     Dates: start: 20130415, end: 20140115
  2. FLUTICASONE FUROATE + VILANTEROL TRIFENATATE [Suspect]
     Route: 055
     Dates: start: 20140119
  3. MORPHINE SULFATE [Concomitant]
     Indication: PAIN
     Route: 048
     Dates: start: 2013
  4. VESICARE [Concomitant]
     Indication: BLADDER DISORDER
     Dosage: 2MG TWICE PER DAY
     Route: 048
     Dates: start: 2011
  5. ABILIFY [Concomitant]
     Indication: DEPRESSION
     Dosage: 5MG TWICE PER DAY
     Route: 048
     Dates: start: 2011
  6. VALIUM [Concomitant]
     Indication: ANXIETY
     Dosage: 5MG THREE TIMES PER DAY
     Route: 048
     Dates: start: 2008
  7. MARIJUANA [Concomitant]
     Indication: PAIN
     Route: 048
     Dates: start: 2010
  8. MARIJUANA [Concomitant]
     Indication: ANXIETY
  9. METHOCARBAMOL [Concomitant]
     Indication: MUSCLE RELAXANT THERAPY
     Dosage: 725MG THREE TIMES PER DAY
     Route: 048
     Dates: start: 2009
  10. VICODIN [Concomitant]
     Indication: PAIN
     Dosage: 1MG FOUR TIMES PER DAY
     Route: 048
     Dates: start: 2012
  11. FLUTICASONE PROPIONATE [Concomitant]
     Indication: HYPERSENSITIVITY
     Dosage: 100MCG TWICE PER DAY
     Dates: start: 20111122
  12. CALCIUM [Concomitant]
     Indication: SUPPLEMENTATION THERAPY
     Dosage: 500MG PER DAY
     Route: 048
     Dates: start: 2010
  13. KEFLEX [Concomitant]
     Indication: SKIN INFECTION
     Dosage: 500MG TWICE PER DAY
     Route: 048
     Dates: start: 20130415
  14. HYDROCORTISONE [Concomitant]
     Indication: SKIN INFECTION
     Route: 061
     Dates: start: 20130415
  15. BACTROBAN [Concomitant]
     Indication: SKIN LESION
     Dosage: 2PCT THREE TIMES PER DAY
     Route: 061
     Dates: start: 20130415
  16. DUONEB [Concomitant]
     Indication: CHRONIC OBSTRUCTIVE PULMONARY DISEASE
     Route: 055
     Dates: start: 20130429
  17. GUAIFENESIN [Concomitant]
     Indication: CHRONIC OBSTRUCTIVE PULMONARY DISEASE
     Route: 048
     Dates: start: 20130429
  18. LANSOPRAZOLE [Concomitant]
     Indication: GASTROOESOPHAGEAL REFLUX DISEASE
     Route: 048
     Dates: start: 2010
  19. XANAX [Concomitant]
     Indication: ANXIETY
     Route: 048
     Dates: start: 20130409
  20. CYMBALTA [Concomitant]
     Indication: DEPRESSION
     Dosage: 90MG TWICE PER DAY
     Route: 048
     Dates: start: 20130409
  21. NAPROSYN [Concomitant]
     Indication: MUSCULOSKELETAL PAIN
     Route: 048
     Dates: start: 20130701
  22. DOCUSATE SODIUM [Concomitant]
     Indication: CONSTIPATION
     Dosage: 100MG TWICE PER DAY
     Route: 048
     Dates: start: 2012
  23. EPIPEN [Concomitant]
     Indication: HYPERSENSITIVITY
     Route: 030
     Dates: start: 2003
  24. VITAMIN B12 [Concomitant]
     Indication: SUPPLEMENTATION THERAPY
     Dosage: 500MG PER DAY
     Route: 048
     Dates: start: 2008
  25. MORPHINE SULFATE [Concomitant]
     Indication: PAIN
     Dosage: 15MG THREE TIMES PER DAY
     Dates: start: 20130701
  26. BETAMETHASONE DIPROPIONATE + CLOTRIMAZOLE [Concomitant]
     Indication: RASH
     Route: 061
     Dates: start: 201304
  27. MULTIVITAMIN [Concomitant]
     Indication: SUPPLEMENTATION THERAPY
     Route: 048
     Dates: start: 2000
  28. ZOFRAN [Concomitant]
     Indication: ANTIEMETIC SUPPORTIVE CARE
     Route: 048
     Dates: start: 20130722
  29. ALBUTEROL [Concomitant]
     Indication: CHRONIC OBSTRUCTIVE PULMONARY DISEASE
     Route: 055
     Dates: start: 20130722
  30. LISINOPRIL [Concomitant]
     Indication: HYPERTENSION
     Dosage: 10MG PER DAY
     Route: 048
     Dates: start: 2009
  31. ONDANSETRON HCL [Concomitant]
     Indication: VOMITING
     Route: 048
     Dates: start: 20131028
  32. POTASSIUM [Concomitant]
     Indication: SUPPLEMENTATION THERAPY
     Dosage: 10MG PER DAY
     Route: 048
     Dates: start: 2009
  33. SIMVASTATIN [Concomitant]
     Indication: HYPERLIPIDAEMIA
     Route: 048
     Dates: start: 2009
  34. FUROSEMIDE [Concomitant]
     Indication: DIURETIC THERAPY
     Dosage: 40MG PER DAY
     Route: 048
     Dates: start: 2009
  35. FLEXERIL [Concomitant]
     Indication: FIBROMYALGIA
     Dosage: 2MG THREE TIMES PER DAY
     Route: 048
     Dates: start: 20131218
  36. MORPHINE [Concomitant]
     Indication: CHEST PAIN
     Dosage: 2MG TWICE PER DAY
     Route: 042
     Dates: start: 20140102, end: 20140102
  37. DECADRON [Concomitant]
     Indication: HYPERSENSITIVITY
     Route: 042
     Dates: start: 20140102, end: 20140102
  38. BENADRYL [Concomitant]
     Indication: REACTION TO DRUG EXCIPIENTS
     Route: 042
     Dates: start: 20140102, end: 20140102
  39. ATIVAN [Concomitant]
     Indication: ANXIETY
     Route: 042
     Dates: start: 20140102, end: 20140102

REACTIONS (3)
  - Syncope [Recovered/Resolved]
  - Encephalopathy [Recovered/Resolved]
  - Addison^s disease [Recovered/Resolved]
